FAERS Safety Report 6259378-9 (Version None)
Quarter: 2009Q3

REPORT INFORMATION
  Report Type: 
  Country: None (occurrence: None)
  Receive Date: 20090706
  Receipt Date: 20090623
  Transmission Date: 20100115
  Serious: Yes (Death)
  Sender: FDA-Public Use
  Company Number: 1-18958192

PATIENT
  Age: 63 Year
  Sex: Female
  Weight: 51.2565 kg

DRUGS (13)
  1. FENTANYL [Suspect]
     Indication: PROCEDURAL PAIN
     Dosage: TRANSDERMAL
     Route: 062
  2. PROMETHAZINE [Concomitant]
  3. ALTACE [Concomitant]
  4. CARVEDILOL [Concomitant]
  5. DARVON [Concomitant]
  6. LYRICA [Concomitant]
  7. NEXIUM [Concomitant]
  8. OXYCODONE [Concomitant]
  9. XANAX [Concomitant]
  10. PROZAC [Concomitant]
  11. ESTRADIOL [Concomitant]
  12. DOXYCYCLINE [Concomitant]
  13. MINITRAN [Concomitant]

REACTIONS (2)
  - ARTERIOSCLEROSIS CORONARY ARTERY [None]
  - DRUG TOXICITY [None]
